FAERS Safety Report 5971532-X (Version None)
Quarter: 2008Q4

REPORT INFORMATION
  Report Type: 
  Country: None (occurrence: None)
  Receive Date: 20081201
  Receipt Date: 20081013
  Transmission Date: 20090506
  Serious: No
  Sender: FDA-Public Use
  Company Number: US-AMGEN-KDL301502

PATIENT
  Sex: Female
  Weight: 75.4 kg

DRUGS (1)
  1. ENBREL [Suspect]
     Indication: PSORIASIS
     Route: 058
     Dates: start: 20070227

REACTIONS (3)
  - CYSTITIS ESCHERICHIA [None]
  - PNEUMONIA [None]
  - PSORIASIS [None]
